FAERS Safety Report 8541075-8 (Version None)
Quarter: 2012Q3

REPORT INFORMATION
  Report Type: 
  Country: None (occurrence: None)
  Receive Date: 20120726
  Receipt Date: 20110823
  Transmission Date: 20120928
  Serious: No
  Sender: FDA-Public Use
  Company Number: US-ASTRAZENECA-2011SE50443

PATIENT
  Age: 89 Year
  Sex: Female
  Weight: 58.1 kg

DRUGS (7)
  1. MEDICATION FOR ALLERGIES [Concomitant]
  2. TYLENOL [Concomitant]
  3. SEROQUEL [Suspect]
     Route: 048
     Dates: start: 20110501
  4. SEROQUEL [Suspect]
     Indication: ANXIETY
     Route: 048
     Dates: start: 20010101
  5. SEROQUEL [Suspect]
     Indication: NERVOUSNESS
     Route: 048
     Dates: start: 20010101
  6. MEDICATION FOR GAS [Concomitant]
  7. SEROQUEL [Suspect]
     Route: 048
     Dates: start: 20110501

REACTIONS (2)
  - INCISIONAL HERNIA [None]
  - THERAPEUTIC RESPONSE UNEXPECTED [None]
